FAERS Safety Report 16060905 (Version 1)
Quarter: 2019Q1

REPORT INFORMATION
  Report Type: Spontaneous
  Country: US (occurrence: US)
  Receive Date: 20190312
  Receipt Date: 20190312
  Transmission Date: 20190418
  Serious: Yes (Other)
  Sender: FDA-Public Use
  Company Number: US-HORMOSAN PHARMA GMBH-2019-01309

PATIENT
  Age: 32 Year
  Sex: Female
  Weight: 58.96 kg

DRUGS (6)
  1. GEODON [Suspect]
     Active Substance: ZIPRASIDONE HYDROCHLORIDE\ZIPRASIDONE MESYLATE
     Indication: PRODUCT USED FOR UNKNOWN INDICATION
     Dosage: UNK
     Route: 065
  2. ZIPRASIDONE HYDROCHLORIDE CAPSULES, 80 MG [Suspect]
     Active Substance: ZIPRASIDONE HYDROCHLORIDE
     Indication: AFFECTIVE DISORDER
     Dosage: STARTED IN 2010 OR 2011, 80 MG AT NIGHT
     Route: 048
     Dates: end: 201805
  3. LEVOTHYROXINE. [Suspect]
     Active Substance: LEVOTHYROXINE
     Indication: PRODUCT USED FOR UNKNOWN INDICATION
     Dosage: UNK
     Route: 065
  4. TOPIRAMATE. [Suspect]
     Active Substance: TOPIRAMATE
     Indication: PRODUCT USED FOR UNKNOWN INDICATION
     Dosage: UNK
     Route: 065
  5. ZIPRASIDONE HYDROCHLORIDE CAPSULES, 80 MG [Suspect]
     Active Substance: ZIPRASIDONE HYDROCHLORIDE
     Indication: DEPRESSION
     Dosage: 100 MILLIGRAM, QD (NIGHT)
     Route: 048
  6. TOPAMAX [Suspect]
     Active Substance: TOPIRAMATE
     Indication: PRODUCT USED FOR UNKNOWN INDICATION
     Dosage: UNK
     Route: 065

REACTIONS (16)
  - Anxiety [Unknown]
  - Treatment noncompliance [Unknown]
  - Skin reaction [Unknown]
  - Illusion [Unknown]
  - Anger [Unknown]
  - Malaise [Unknown]
  - Feeling drunk [Unknown]
  - Urticaria [Unknown]
  - Thinking abnormal [Unknown]
  - Hyperphagia [Unknown]
  - Persecutory delusion [Unknown]
  - Eye swelling [Unknown]
  - Neck injury [Unknown]
  - Hyperventilation [Unknown]
  - Rash [Unknown]
  - Suspected product quality issue [Unknown]

NARRATIVE: CASE EVENT DATE: 201801
